FAERS Safety Report 21459824 (Version 1)
Quarter: 2022Q4

REPORT INFORMATION
  Report Type: Report from Study
  Country: BR (occurrence: BR)
  Receive Date: 20221014
  Receipt Date: 20221014
  Transmission Date: 20230112
  Serious: Yes (Hospitalization)
  Sender: FDA-Public Use
  Company Number: BR-TAKEDA-SPV1-2009-02420

PATIENT
  Age: 12 Year
  Sex: Male

DRUGS (11)
  1. IDURSULFASE [Suspect]
     Active Substance: IDURSULFASE
     Indication: Mucopolysaccharidosis II
     Dosage: UNK
     Route: 041
     Dates: start: 20040729, end: 20070528
  2. IDURSULFASE [Suspect]
     Active Substance: IDURSULFASE
     Dosage: 17.85 MILLIGRAM, 1/WEEK
     Route: 041
     Dates: start: 20080311
  3. IDURSULFASE [Suspect]
     Active Substance: IDURSULFASE
     Dosage: 0.64 MILLIGRAM/KILOGRAM
     Route: 042
     Dates: start: 20090825
  4. IPRATROPIUM [Concomitant]
     Active Substance: IPRATROPIUM
     Indication: Respiratory disorder
     Route: 065
     Dates: start: 2003
  5. FENOTEROL [Concomitant]
     Active Substance: FENOTEROL
     Indication: Respiratory disorder
     Dosage: 5 DF, OTHER
     Route: 055
     Dates: start: 2003
  6. PHENOBARBITAL [Concomitant]
     Active Substance: PHENOBARBITAL
     Indication: Seizure prophylaxis
     Dosage: UNK
     Route: 048
  7. PHENOBARBITAL [Concomitant]
     Active Substance: PHENOBARBITAL
     Indication: Nervous system disorder
     Dosage: 50 DOSAGE FORM, QD
     Route: 048
     Dates: start: 199708
  8. BUDESONIDE [Concomitant]
     Active Substance: BUDESONIDE
     Indication: Respiratory disorder
     Dosage: UNK
     Route: 055
     Dates: start: 200505, end: 200710
  9. AMOXICILLIN [Concomitant]
     Active Substance: AMOXICILLIN
     Indication: Infection
     Dosage: UNK
     Route: 048
     Dates: start: 20110506, end: 20110520
  10. AZITHROMYCIN [Concomitant]
     Active Substance: AZITHROMYCIN
     Indication: Infection
     Dosage: UNK
     Route: 048
     Dates: start: 20110821, end: 20110829
  11. AZITHROMYCIN [Concomitant]
     Active Substance: AZITHROMYCIN
     Dosage: UNK
     Route: 048
     Dates: start: 20110822, end: 20110829

REACTIONS (2)
  - Obstructive sleep apnoea syndrome [Recovered/Resolved]
  - Oxygen saturation decreased [Recovered/Resolved]

NARRATIVE: CASE EVENT DATE: 20090811
